FAERS Safety Report 10266087 (Version 1)
Quarter: 2014Q2

REPORT INFORMATION
  Report Type: Spontaneous
  Country: US (occurrence: US)
  Receive Date: 20140627
  Receipt Date: 20140627
  Transmission Date: 20141212
  Serious: No
  Sender: FDA-Public Use
  Company Number: US-TEVA-490869USA

PATIENT
  Sex: Female

DRUGS (1)
  1. COPAXONE [Suspect]
     Indication: MULTIPLE SCLEROSIS
     Dates: start: 20130301, end: 20130701

REACTIONS (6)
  - Back pain [Unknown]
  - Malaise [Unknown]
  - Mental status changes [Unknown]
  - Fluid retention [Unknown]
  - Asthenia [Unknown]
  - Pain in extremity [Unknown]
